FAERS Safety Report 23971584 (Version 7)
Quarter: 2024Q4

REPORT INFORMATION
  Report Type: Spontaneous
  Country: US (occurrence: US)
  Receive Date: 20240613
  Receipt Date: 20241217
  Transmission Date: 20250115
  Serious: Yes (Other)
  Sender: PFIZER
  Company Number: US-PFIZER INC-202400188095

PATIENT
  Age: 10 Year
  Sex: Male
  Weight: 32.21 kg

DRUGS (4)
  1. GENOTROPIN [Suspect]
     Active Substance: SOMATROPIN
     Indication: Growth hormone deficiency
     Dosage: ROTATE BETWEEN A 1.2 AND A 1.4 MILLIGRAM (ASSIGNED A 1.3 MG)
  2. GENOTROPIN [Suspect]
     Active Substance: SOMATROPIN
     Dosage: ROTATE BETWEEN A 1.2 AND A 1.4 MILLIGRAM (ASSIGNED A 1.3 MG)
  3. GENOTROPIN [Suspect]
     Active Substance: SOMATROPIN
     Dosage: ALTERNATE 1.2MG + 1.4MG/1.2MG ALTERNATING WITH 1.4MG TO HAVE EQUALED A DOSE OF 1.3MG, BY INJECTION
     Dates: start: 20240529
  4. GENOTROPIN [Suspect]
     Active Substance: SOMATROPIN
     Dosage: ALTERNATE 1.2 AND 1.4 EVERY OTHER DAY
     Route: 058
     Dates: start: 20240529, end: 202406

REACTIONS (5)
  - Incorrect dose administered by device [Unknown]
  - Drug dose omission by device [Unknown]
  - Poor quality device used [Unknown]
  - Device use issue [Unknown]
  - Device leakage [Unknown]

NARRATIVE: CASE EVENT DATE: 20240604
